FAERS Safety Report 9768331 (Version 1)
Quarter: 2013Q4

REPORT INFORMATION
  Report Type: Spontaneous
  Country: US (occurrence: US)
  Receive Date: 20131217
  Receipt Date: 20131217
  Transmission Date: 20140711
  Serious: No
  Sender: FDA-Public Use
  Company Number: US-GILEAD-2013-0089957

PATIENT
  Age: 51 Year
  Sex: Female

DRUGS (8)
  1. RANEXA [Suspect]
     Indication: PRODUCT USED FOR UNKNOWN INDICATION
     Dosage: 500 MG, BID
     Route: 048
  2. METOPROLOL [Concomitant]
  3. HYZAAR [Concomitant]
  4. LIPITOR [Concomitant]
  5. LASIX                              /00032601/ [Concomitant]
  6. PLAVIX [Concomitant]
  7. OMEPRAZOLE [Concomitant]
  8. GLYCOSIDE [Concomitant]

REACTIONS (1)
  - Hyperhidrosis [Recovered/Resolved]
